FAERS Safety Report 10160911 (Version 2)
Quarter: 2014Q4

REPORT INFORMATION
  Report Type: Report from Study
  Country: DE (occurrence: JP)
  Receive Date: 20140508
  Receipt Date: 20141120
  Transmission Date: 20150528
  Serious: Yes (Death)
  Sender: FDA-Public Use
  Company Number: JP-FRI-1000066940

PATIENT
  Age: 91 Year
  Sex: Female

DRUGS (1)
  1. MEMANTINE (OPEN-LABEL) [Suspect]
     Active Substance: MEMANTINE
     Indication: DEMENTIA ALZHEIMER^S TYPE
     Route: 048

REACTIONS (1)
  - Death [Fatal]

NARRATIVE: CASE EVENT DATE: 20140228
